FAERS Safety Report 9410614 (Version 1)
Quarter: 2013Q2

REPORT INFORMATION
  Report Type: Spontaneous
  Country: US (occurrence: None)
  Receive Date: 20130628
  Receipt Date: 20130628
  Transmission Date: 20140414
  Serious: Yes (Hospitalization)
  Sender: FDA-Public Use
  Company Number: 003-119

PATIENT
  Age: 11 Year
  Sex: Male
  Weight: 29.48 kg

DRUGS (4)
  1. CROFAB [Suspect]
     Indication: SNAKE BITE
     Dosage: ~76 VIALS
     Dates: start: 20130531, end: 20130615
  2. ANTIHISTAMINE (NOS) [Concomitant]
  3. BENADRYL [Concomitant]
  4. TYLENOL [Concomitant]

REACTIONS (4)
  - Asthenia [None]
  - Muscle twitching [None]
  - Paraesthesia [None]
  - Laboratory test abnormal [None]
